FAERS Safety Report 18661913 (Version 3)
Quarter: 2021Q3

REPORT INFORMATION
  Report Type: Report from Study
  Country: FR (occurrence: FR)
  Receive Date: 20201224
  Receipt Date: 20210723
  Transmission Date: 20211014
  Serious: Yes (Death, Hospitalization, Other)
  Sender: FDA-Public Use
  Company Number: FR-TAKEDA-FR201847173

PATIENT
  Age: 73 Year
  Sex: Male
  Weight: 58 kg

DRUGS (17)
  1. TEDUGLUTIDE [Suspect]
     Active Substance: TEDUGLUTIDE
     Indication: SHORT-BOWEL SYNDROME
     Dosage: 2.85 MG (TOTAL DAILY DOSE 0.05 MG/KG), 7 DOSES PER WEEK
     Route: 065
     Dates: start: 20160115, end: 20170706
  2. TEDUGLUTIDE [Suspect]
     Active Substance: TEDUGLUTIDE
     Indication: SHORT-BOWEL SYNDROME
     Dosage: 2.85 MG (TOTAL DAILY DOSE 0.05 MG/KG), 7 DOSES PER WEEK
     Route: 065
     Dates: start: 20160115, end: 20170706
  3. TEDUGLUTIDE [Suspect]
     Active Substance: TEDUGLUTIDE
     Dosage: 2.85 MG (TOTAL DAILY DOSE 0.05 MG/KG), 3 DOSES PER WEEK
     Route: 065
     Dates: start: 20170706, end: 20170901
  4. TEDUGLUTIDE [Suspect]
     Active Substance: TEDUGLUTIDE
     Dosage: 2.8 MG (TOTAL DAILY DOSE 0.05 MG/KG), 7 DOSES PER WEEK
     Route: 065
     Dates: start: 20180108
  5. TEDUGLUTIDE [Suspect]
     Active Substance: TEDUGLUTIDE
     Dosage: 2.8 MG (TOTAL DAILY DOSE 0.05 MG/KG), 7 DOSES PER WEEK
     Route: 065
     Dates: start: 20180108
  6. VANCOMYCINE [Concomitant]
     Active Substance: VANCOMYCIN
     Indication: DERMATITIS INFECTED
     Dosage: 30 MILLIGRAM/KILOGRAM, QD
     Route: 042
     Dates: start: 20170803, end: 20170813
  7. VANCOMYCINE [Concomitant]
     Active Substance: VANCOMYCIN
     Indication: DEVICE RELATED INFECTION
     Dosage: 999 UNK
     Route: 042
     Dates: start: 201806, end: 201806
  8. TEDUGLUTIDE [Suspect]
     Active Substance: TEDUGLUTIDE
     Indication: SHORT-BOWEL SYNDROME
     Dosage: 2.85 MG (TOTAL DAILY DOSE 0.05 MG/KG), 7 DOSES PER WEEK
     Route: 065
     Dates: start: 20160115, end: 20170706
  9. TEDUGLUTIDE [Suspect]
     Active Substance: TEDUGLUTIDE
     Indication: SHORT-BOWEL SYNDROME
     Dosage: 2.85 MG (TOTAL DAILY DOSE 0.05 MG/KG), 7 DOSES PER WEEK
     Route: 065
     Dates: start: 20160115, end: 20170706
  10. TEDUGLUTIDE [Suspect]
     Active Substance: TEDUGLUTIDE
     Dosage: 2.85 MG (TOTAL DAILY DOSE 0.05 MG/KG), 3 DOSES PER WEEK
     Route: 065
     Dates: start: 20170706, end: 20170901
  11. TEDUGLUTIDE [Suspect]
     Active Substance: TEDUGLUTIDE
     Dosage: 2.8 MG (TOTAL DAILY DOSE 0.05 MG/KG), 7 DOSES PER WEEK
     Route: 065
     Dates: start: 20180108
  12. TEDUGLUTIDE [Suspect]
     Active Substance: TEDUGLUTIDE
     Dosage: 2.85 MG (TOTAL DAILY DOSE 0.05 MG/KG), 3 DOSES PER WEEK
     Route: 065
     Dates: start: 20170706, end: 20170901
  13. TAZOCILLINE [Concomitant]
     Active Substance: PIPERACILLIN SODIUM\TAZOBACTAM SODIUM
     Indication: DERMATITIS INFECTED
     Dosage: 999 UNK
     Route: 042
     Dates: start: 201806, end: 201806
  14. ZYVOXID [Concomitant]
     Active Substance: LINEZOLID
     Indication: DERMATITIS INFECTED
     Dosage: 999 UNK
     Route: 048
     Dates: start: 201806, end: 201806
  15. TEDUGLUTIDE [Suspect]
     Active Substance: TEDUGLUTIDE
     Dosage: 2.85 MG (TOTAL DAILY DOSE 0.05 MG/KG), 3 DOSES PER WEEK
     Route: 065
     Dates: start: 20170706, end: 20170901
  16. LOPERAMIDE [Concomitant]
     Active Substance: LOPERAMIDE
     Indication: DIARRHOEA
     Dosage: UNK
     Route: 065
  17. TEDUGLUTIDE [Suspect]
     Active Substance: TEDUGLUTIDE
     Dosage: 2.8 MG (TOTAL DAILY DOSE 0.05 MG/KG), 7 DOSES PER WEEK
     Route: 065
     Dates: start: 20180108

REACTIONS (5)
  - Encephalomalacia [Not Recovered/Not Resolved]
  - Gait disturbance [Not Recovered/Not Resolved]
  - Pneumonia aspiration [Recovered/Resolved]
  - Femoral neck fracture [Recovered/Resolved]
  - Pulmonary embolism [Fatal]

NARRATIVE: CASE EVENT DATE: 20181022
